FAERS Safety Report 8879667 (Version 2)
Quarter: 2012Q4

REPORT INFORMATION
  Report Type: 
  Country: IE (occurrence: IE)
  Receive Date: 20121031
  Receipt Date: 20121129
  Transmission Date: 20130627
  Serious: Yes (Hospitalization)
  Sender: FDA-Public Use
  Company Number: IE-BAXTER-2012BAX021059

PATIENT
  Age: 46 Year
  Sex: Male

DRUGS (7)
  1. 0.9% SODIUM CHLORIDE INJECTION [Suspect]
     Indication: OSTEOMYELITIS
     Route: 042
     Dates: start: 20121017
  2. UNSPECIFIED INGREDIENT [Suspect]
     Indication: OSTEOMYELITIS
     Route: 042
     Dates: start: 20121017
  3. FLUCLOXACILLIN [Suspect]
     Indication: OSTEOMYELITIS
     Route: 042
     Dates: start: 20121017, end: 20121021
  4. FLUCLOXACILLIN [Suspect]
     Route: 042
     Dates: start: 20121022, end: 20121022
  5. CALVAPEN [Concomitant]
     Indication: DRUG USE FOR UNKNOWN INDICATION
     Route: 065
     Dates: start: 20121022
  6. BENZYLPENICILLIN [Concomitant]
     Indication: DRUG USE FOR UNKNOWN INDICATION
     Route: 065
  7. VANCOMYCIN [Concomitant]
     Indication: DRUG USE FOR UNKNOWN INDICATION
     Route: 065

REACTIONS (5)
  - Malaise [Recovered/Resolved]
  - Feeling cold [Recovered/Resolved]
  - Chills [Recovered/Resolved]
  - Hyperhidrosis [Recovered/Resolved]
  - Device related infection [None]
